FAERS Safety Report 25754205 (Version 2)
Quarter: 2025Q4

REPORT INFORMATION
  Report Type: Spontaneous
  Country: EU (occurrence: EU)
  Receive Date: 20250903
  Receipt Date: 20251010
  Transmission Date: 20260118
  Serious: Yes (Hospitalization)
  Sender: ACCORD
  Company Number: None

PATIENT
  Age: 75 Year
  Sex: Male
  Weight: 72 kg

DRUGS (1)
  1. TADALAFIL [Suspect]
     Active Substance: TADALAFIL
     Indication: Urinary tract disorder
     Dosage: STRENGTH: 5 MG
     Dates: start: 20250509, end: 20250610

REACTIONS (1)
  - Optic ischaemic neuropathy [Recovering/Resolving]

NARRATIVE: CASE EVENT DATE: 20250610
